FAERS Safety Report 6240251-7 (Version None)
Quarter: 2009Q2

REPORT INFORMATION
  Report Type: 
  Country: None (occurrence: None)
  Receive Date: 20090623
  Receipt Date: 20080507
  Transmission Date: 20091009
  Serious: No
  Sender: FDA-Public Use
  Company Number: US-ASTRAZENECA-2008UW09419

PATIENT
  Age: 77 Year
  Sex: Male
  Weight: 86.2 kg

DRUGS (2)
  1. PULMICORT FLEXHALER [Suspect]
     Indication: EMPHYSEMA
     Dosage: 180 UG TWO PUFFS BID FOR ALMOST 6 MONTHS
     Route: 055
     Dates: start: 20071101
  2. BLOOD THINNING MEDICATION [Concomitant]

REACTIONS (1)
  - DYSPNOEA [None]
